FAERS Safety Report 6380272-7 (Version None)
Quarter: 2009Q3

REPORT INFORMATION
  Report Type: 
  Country: None (occurrence: None)
  Receive Date: 20090929
  Receipt Date: 20090923
  Transmission Date: 20100115
  Serious: Yes (Hospitalization)
  Sender: FDA-Public Use
  Company Number: JP-ROCHE-653399

PATIENT
  Age: 6 Year
  Sex: Female

DRUGS (14)
  1. CLONAZEPAM [Suspect]
     Route: 065
  2. MIDAZOLAM HCL [Suspect]
     Dosage: INFUSION
     Route: 042
  3. MIDAZOLAM HCL [Suspect]
     Route: 042
  4. MIDAZOLAM HCL [Suspect]
     Dosage: CONTINUOUS DRIP OF 0.09 MG/KG/HR
     Route: 042
  5. MIDAZOLAM HCL [Suspect]
     Route: 042
  6. MIDAZOLAM HCL [Suspect]
     Dosage: MIDAZOLAM WAS INCREASED TO 0.3 MG/KG/HR
     Route: 042
  7. VITAMIN B6 [Suspect]
     Route: 065
  8. VALPROATE SODIUM [Suspect]
     Route: 065
  9. VALPROATE SODIUM [Suspect]
     Dosage: DOSE INCREASED.
     Route: 065
  10. PHENOBARBITAL [Suspect]
     Dosage: HIGH DOSE THERAPY (MAXIMUM CONCENTRATION IN BLOOD 52.8 MG/DL)
     Route: 065
  11. PHENOBARBITAL [Suspect]
     Dosage: 11 MG/KG/D
     Route: 065
  12. PHENOBARBITAL [Suspect]
     Dosage: DOSE REDUCED TO HALF, 5.4 MG/KG/D
     Route: 065
  13. CLOBAZAM [Suspect]
     Route: 065
  14. CLOBAZAM [Suspect]
     Dosage: DOSE INCREASED
     Route: 065

REACTIONS (6)
  - DRUG DEPENDENCE [None]
  - DRUG INEFFECTIVE [None]
  - EATING DISORDER [None]
  - EPILEPSY [None]
  - NASOPHARYNGITIS [None]
  - PYREXIA [None]
